FAERS Safety Report 11320288 (Version 3)
Quarter: 2015Q3

REPORT INFORMATION
  Report Type: Report from Study
  Country: BE (occurrence: BE)
  Receive Date: 20150729
  Receipt Date: 20150924
  Transmission Date: 20151125
  Serious: Yes (Hospitalization)
  Sender: FDA-Public Use
  Company Number: BE-ABBVIE-15P-013-1430030-00

PATIENT
  Sex: Male

DRUGS (11)
  1. DUODOPA [Suspect]
     Active Substance: CARBIDOPA\LEVODOPA
     Dosage: AM DOSE=0ML, CD=4.6ML/H FOR 16HRS, ED=0ML, ND=3.6ML/H FOR 8HRS
     Route: 050
     Dates: start: 20150921
  2. LEPONEX [Concomitant]
     Active Substance: CLOZAPINE
     Indication: PRODUCT USED FOR UNKNOWN INDICATION
  3. DUODOPA [Suspect]
     Active Substance: CARBIDOPA\LEVODOPA
     Dosage: AM = 0 ML, CD = 4.6 ML/H DURING 16H, ED = 2.5 ML, ND = 3.6 ML/H DURING 8H
     Route: 050
     Dates: start: 20140813, end: 20150813
  4. DUODOPA [Suspect]
     Active Substance: CARBIDOPA\LEVODOPA
     Indication: PARKINSON^S DISEASE
     Dosage: AM = 9 ML, CD = 4.6 ML/H DURING 16H, ED = 2.5 ML
     Route: 050
     Dates: start: 20140210, end: 20140214
  5. DONEZEPIL [Concomitant]
     Active Substance: DONEPEZIL
     Indication: PRODUCT USED FOR UNKNOWN INDICATION
  6. PROLOPA [Concomitant]
     Active Substance: BENSERAZIDE\LEVODOPA
     Indication: PARKINSON^S DISEASE
     Dosage: 3 TO 4 IN 1 DAY
     Route: 065
  7. PROLOPA HBS [Concomitant]
     Indication: PRODUCT USED FOR UNKNOWN INDICATION
     Dosage: FORM STRENGTH: 100MG/25MG
  8. DUODOPA [Suspect]
     Active Substance: CARBIDOPA\LEVODOPA
     Dosage: DOSE CONTINUOUSLY MONITORED AND ADAPTED
     Route: 050
     Dates: start: 20140214, end: 20140813
  9. DUODOPA [Suspect]
     Active Substance: CARBIDOPA\LEVODOPA
     Dosage: AM DOSE=0ML, CD=4.6ML/H FOR 16HRS AND ED=2.5ML, ND=3.6ML/H FOR 8 HRS
     Route: 050
     Dates: start: 20150813, end: 20150921
  10. PANTOMED [Concomitant]
     Active Substance: DEXPANTHENOL
     Indication: PRODUCT USED FOR UNKNOWN INDICATION
  11. LEPONEX [Concomitant]
     Active Substance: CLOZAPINE

REACTIONS (21)
  - Freezing phenomenon [Unknown]
  - Anaemia [Unknown]
  - General physical health deterioration [Recovering/Resolving]
  - Dysphagia [Unknown]
  - Dermatitis allergic [Unknown]
  - Mobility decreased [Recovering/Resolving]
  - Tremor [Unknown]
  - Erythema [Unknown]
  - Escherichia urinary tract infection [Unknown]
  - Myotonic dystrophy [Unknown]
  - Skin abrasion [Unknown]
  - Arthralgia [Unknown]
  - Hypersensitivity [Unknown]
  - Pallor [Unknown]
  - Dysarthria [Unknown]
  - Fall [Unknown]
  - Dysstasia [Recovered/Resolved]
  - Faecal incontinence [Unknown]
  - Gait disturbance [Recovering/Resolving]
  - Dyskinesia [Unknown]
  - Resting tremor [Unknown]
